FAERS Safety Report 9202288 (Version 1)
Quarter: 2013Q1

REPORT INFORMATION
  Report Type: Spontaneous
  Country: US (occurrence: None)
  Receive Date: 20130329
  Receipt Date: 20130329
  Transmission Date: 20140127
  Serious: Yes (Other)
  Sender: FDA-Public Use
  Company Number: None

PATIENT
  Age: 70 Year
  Sex: Female
  Weight: 87.09 kg

DRUGS (21)
  1. AFINITOR [Suspect]
     Route: 048
     Dates: start: 20130310
  2. ZOSTAVAX [Suspect]
     Dosage: SHOT ONCE OTHER
     Dates: start: 20130314, end: 20130314
  3. SYNTHROID [Concomitant]
  4. AROMASIN [Concomitant]
  5. PROZAC [Concomitant]
  6. DOXEPIN [Concomitant]
  7. CLONAZEPAM [Concomitant]
  8. MAGNESIUM SALTS [Concomitant]
  9. MELATONIN [Concomitant]
  10. PROBIOTICS [Concomitant]
  11. SEACURE WHITE FISH EXTRACT [Concomitant]
  12. COQ10 [Concomitant]
  13. MULTI VITAMIN [Concomitant]
  14. PANCREATIC ENZYMES [Concomitant]
  15. MILK THISSLE [Concomitant]
  16. COFFEE BEAN EXTRACT [Concomitant]
  17. ASPIRIN [Concomitant]
  18. GAVISCON [Concomitant]
  19. VITAMIN C [Concomitant]
  20. BORAG OIL [Concomitant]
  21. OMEGA 3 PILLS [Concomitant]

REACTIONS (3)
  - Tongue discolouration [None]
  - Tongue disorder [None]
  - Vein disorder [None]
